FAERS Safety Report 4774274-1 (Version None)
Quarter: 2005Q3

REPORT INFORMATION
  Report Type: 
  Country: None (occurrence: None)
  Receive Date: 20050914
  Receipt Date: 20050401
  Transmission Date: 20060218
  Serious: Yes (Other)
  Sender: FDA-Public Use
  Company Number: 163-20785-05040242

PATIENT
  Sex: Male

DRUGS (4)
  1. THALOMID OR PLACEBO (THALIDOMIDE) (CAPSULES) [Suspect]
     Indication: PROSTATIC INTRAEPITHELIAL NEOPLASIA
     Dosage: 200 MG OR PLACEBO, DAILY, ORAL; 100 MG PLACEBO, DAILY, ORAL
     Route: 048
     Dates: start: 20030411
  2. THALOMID OR PLACEBO (THALIDOMIDE) (CAPSULES) [Suspect]
     Indication: PROSTATIC INTRAEPITHELIAL NEOPLASIA
     Dosage: 200 MG OR PLACEBO, DAILY, ORAL; 100 MG PLACEBO, DAILY, ORAL
     Route: 048
     Dates: start: 20040419
  3. LEUPROLIDE (L) OR GOSERELIN (G) (UNKNOWN) [Suspect]
     Indication: PROSTATIC INTRAEPITHELIAL NEOPLASIA
     Dosage: SEE IMAGE
     Route: 058
     Dates: start: 20030411
  4. LEUPROLIDE (L) OR GOSERELIN (G) (UNKNOWN) [Suspect]
     Indication: PROSTATIC INTRAEPITHELIAL NEOPLASIA
     Dosage: SEE IMAGE
     Route: 058
     Dates: start: 20040419

REACTIONS (1)
  - DERMATITIS EXFOLIATIVE [None]
